FAERS Safety Report 24352000 (Version 1)
Quarter: 2024Q3

REPORT INFORMATION
  Report Type: Report from Study
  Country: EG (occurrence: EG)
  Receive Date: 20240923
  Receipt Date: 20240923
  Transmission Date: 20241016
  Serious: No
  Sender: ROCHE
  Company Number: EG-ROCHE-3116516

PATIENT
  Age: 48 Year
  Sex: Female

DRUGS (22)
  1. HERCEPTIN [Suspect]
     Active Substance: TRASTUZUMAB
     Indication: Breast cancer metastatic
     Route: 041
     Dates: start: 20200526, end: 20210307
  2. HERCEPTIN [Suspect]
     Active Substance: TRASTUZUMAB
     Indication: Breast cancer metastatic
     Route: 058
     Dates: start: 20210307
  3. PERJETA [Suspect]
     Active Substance: PERTUZUMAB
     Indication: Breast cancer metastatic
     Route: 042
     Dates: start: 20200526, end: 20210307
  4. XELODA [Suspect]
     Active Substance: CAPECITABINE
     Indication: Breast cancer metastatic
     Route: 048
     Dates: start: 20230515
  5. XELODA [Suspect]
     Active Substance: CAPECITABINE
     Route: 048
  6. TAXOL [Suspect]
     Active Substance: PACLITAXEL
     Indication: Breast cancer metastatic
     Route: 042
     Dates: start: 20200526, end: 20210307
  7. FEMARA [Suspect]
     Active Substance: LETROZOLE
     Indication: Breast cancer metastatic
     Route: 048
     Dates: start: 20210307, end: 20230515
  8. GOSERELIN [Suspect]
     Active Substance: GOSERELIN
     Indication: Breast cancer metastatic
     Route: 058
     Dates: start: 20210307, end: 20230515
  9. ADRIAMYCIN [Suspect]
     Active Substance: DOXORUBICIN HYDROCHLORIDE
     Indication: Breast cancer metastatic
     Route: 042
     Dates: start: 20200324, end: 20200505
  10. ONDALENZ [Concomitant]
     Indication: Nausea
     Dosage: 3 DAYS AFTER THE CYCLE
     Route: 048
     Dates: start: 20200613, end: 20210310
  11. IMODIUM [Concomitant]
     Active Substance: LOPERAMIDE HYDROCHLORIDE
     Indication: Diarrhoea
     Dosage: 1 TAB AFTER MOTION
     Route: 048
     Dates: start: 20201117, end: 20201119
  12. GAPTIN [Concomitant]
     Indication: Neuropathy peripheral
     Route: 048
     Dates: start: 20201124
  13. BENFOTIAMINE\CYANOCOBALAMIN\PYRIDOXINE HYDROCHLORIDE [Concomitant]
     Active Substance: BENFOTIAMINE\CYANOCOBALAMIN\PYRIDOXINE HYDROCHLORIDE
     Indication: Neuropathy peripheral
     Dosage: 1 TABLET
     Route: 048
     Dates: start: 20210207
  14. .ALPHA.-LIPOIC ACID [Concomitant]
     Active Substance: .ALPHA.-LIPOIC ACID
     Indication: Neuropathy peripheral
     Route: 048
     Dates: start: 20210214
  15. BETAMETHASONE VALERATE\FUSIDIC ACID [Concomitant]
     Active Substance: BETAMETHASONE VALERATE\FUSIDIC ACID
     Indication: Nail infection
     Dosage: 1 PAINT
     Route: 061
     Dates: start: 20210228, end: 20210307
  16. VITAMIN D3 [Concomitant]
     Active Substance: CHOLECALCIFEROL
     Indication: Vitamin D deficiency
     Dosage: FOR 4 WEEKS
     Route: 048
     Dates: start: 20210613, end: 20210710
  17. ARMODACURE [Concomitant]
     Indication: Somnolence
     Dates: start: 20220411
  18. QUITAPEX [Concomitant]
     Indication: Altered state of consciousness
     Dates: start: 20220411
  19. LAMICTAL [Concomitant]
     Active Substance: LAMOTRIGINE
     Indication: Abnormal behaviour
     Dates: start: 20220423
  20. SOLIFENACIN [Concomitant]
     Active Substance: SOLIFENACIN
     Dates: start: 20220425
  21. TRYPTIZOL [Concomitant]
     Active Substance: AMITRIPTYLINE HYDROCHLORIDE
     Indication: Somnolence
     Dates: start: 20220411
  22. PRISMAVEN [Concomitant]
     Indication: Altered state of consciousness
     Dates: start: 20220411

REACTIONS (1)
  - Bone pain [Recovered/Resolved]

NARRATIVE: CASE EVENT DATE: 20220306
